FAERS Safety Report 19058754 (Version 1)
Quarter: 2021Q1

REPORT INFORMATION
  Report Type: Spontaneous
  Country: US (occurrence: US)
  Receive Date: 20210325
  Receipt Date: 20210325
  Transmission Date: 20210420
  Serious: Yes (Hospitalization, Other)
  Sender: FDA-Public Use
  Company Number: US-TEVA-2021-US-1892996

PATIENT
  Sex: Female

DRUGS (5)
  1. HYDROCODONE AND ACETAMINOPHEN [Suspect]
     Active Substance: ACETAMINOPHEN\HYDROCODONE
     Indication: PAIN
     Route: 065
  2. OXYCODONE [Suspect]
     Active Substance: OXYCODONE
     Indication: PAIN
     Route: 065
  3. DILAUDID [Suspect]
     Active Substance: HYDROMORPHONE HYDROCHLORIDE
     Indication: PAIN
     Route: 065
  4. OXYCONTIN [Suspect]
     Active Substance: OXYCODONE HYDROCHLORIDE
     Indication: PAIN
     Route: 065
  5. TRAMADOL. [Suspect]
     Active Substance: TRAMADOL
     Indication: PAIN
     Route: 065

REACTIONS (12)
  - Hospitalisation [Unknown]
  - Arthropathy [Unknown]
  - Economic problem [Unknown]
  - Social problem [Unknown]
  - Pneumonia [Unknown]
  - General physical condition abnormal [Unknown]
  - Scar [Unknown]
  - Fatigue [Unknown]
  - Large intestine perforation [Unknown]
  - Surgery [Unknown]
  - Mental disorder [Unknown]
  - Personal relationship issue [Unknown]
